FAERS Safety Report 6899005-0 (Version None)
Quarter: 2010Q3

REPORT INFORMATION
  Report Type: 
  Country: None (occurrence: None)
  Receive Date: 20100802
  Receipt Date: 20071211
  Transmission Date: 20110219
  Serious: No
  Sender: FDA-Public Use
  Company Number: US-PFIZER INC-2007090057

PATIENT
  Sex: Female
  Weight: 113.4 kg

DRUGS (9)
  1. LYRICA [Suspect]
     Indication: CARPAL TUNNEL SYNDROME
     Route: 048
     Dates: start: 20070727
  2. LYRICA [Suspect]
     Indication: NEUROPATHY PERIPHERAL
  3. BENICAR [Concomitant]
  4. ATENOLOL/HYDROCHLOROTHIAZIDE [Concomitant]
  5. METFORMIN HCL [Concomitant]
  6. NEXIUM [Concomitant]
  7. CHLORTHALIDONE [Concomitant]
  8. CRESTOR [Concomitant]
  9. ATENOLOL [Concomitant]

REACTIONS (4)
  - DYSPHAGIA [None]
  - GLYCOSYLATED HAEMOGLOBIN [None]
  - LIMB INJURY [None]
  - PRODUCT QUALITY ISSUE [None]
